FAERS Safety Report 6604004-X (Version None)
Quarter: 2010Q1

REPORT INFORMATION
  Report Type: 
  Country: None (occurrence: None)
  Receive Date: 20100226
  Receipt Date: 20090619
  Transmission Date: 20100710
  Serious: No
  Sender: FDA-Public Use
  Company Number: A0778101A

PATIENT
  Age: 39 Year
  Sex: Male

DRUGS (2)
  1. LAMICTAL CD [Suspect]
     Indication: BIPOLAR DISORDER
     Dosage: 25MG PER DAY
     Route: 048
     Dates: start: 20090403
  2. WELLBUTRIN XL [Concomitant]
     Indication: DEPRESSION
     Dosage: 300MG PER DAY
     Route: 048

REACTIONS (3)
  - BLOOD PRESSURE INCREASED [None]
  - CHROMATURIA [None]
  - DYSPNOEA [None]
